FAERS Safety Report 18726844 (Version 1)
Quarter: 2021Q1

REPORT INFORMATION
  Report Type: Report from Study
  Country: US (occurrence: US)
  Receive Date: 20210111
  Receipt Date: 20210111
  Transmission Date: 20210419
  Serious: Yes (Death, Hospitalization)
  Sender: FDA-Public Use
  Company Number: US-BAUSCH-BL-2020-033886

PATIENT
  Age: 82 Year
  Sex: Female

DRUGS (6)
  1. LACTULOSE. [Concomitant]
     Active Substance: LACTULOSE
     Indication: PRODUCT USED FOR UNKNOWN INDICATION
  2. ANASTRAZOLE [Concomitant]
     Active Substance: ANASTROZOLE
     Indication: PRODUCT USED FOR UNKNOWN INDICATION
  3. HUMULIN PEN 70/30 [Concomitant]
     Indication: PRODUCT USED FOR UNKNOWN INDICATION
  4. IRON [Concomitant]
     Active Substance: IRON
     Indication: ANAEMIA
  5. XIFAXAN [Suspect]
     Active Substance: RIFAXIMIN
     Route: 048
     Dates: start: 2020
  6. XIFAXAN [Suspect]
     Active Substance: RIFAXIMIN
     Indication: POLYCYSTIC LIVER DISEASE
     Route: 048
     Dates: start: 2019

REACTIONS (4)
  - Ammonia increased [Unknown]
  - Inability to afford medication [Unknown]
  - Hospice care [Not Recovered/Not Resolved]
  - Death [Fatal]

NARRATIVE: CASE EVENT DATE: 2019
